FAERS Safety Report 7935208-1 (Version None)
Quarter: 2011Q4

REPORT INFORMATION
  Report Type: 
  Country: None (occurrence: None)
  Receive Date: 20111122
  Receipt Date: 20111116
  Transmission Date: 20120403
  Serious: Yes (Hospitalization, Other)
  Sender: FDA-Public Use
  Company Number: US-BAXTER-2011BH036885

PATIENT

DRUGS (6)
  1. CYCLOPHOSPHAMIDE [Suspect]
     Indication: B-CELL LYMPHOMA
     Route: 065
  2. MESNA [Concomitant]
     Indication: PROPHYLAXIS
     Route: 065
  3. ANTIEMETICS AND ANTINAUSEANTS [Concomitant]
     Indication: PROPHYLAXIS OF NAUSEA AND VOMITING
     Route: 065
  4. PEGFILGRASTIM [Suspect]
     Indication: BONE MARROW CONDITIONING REGIMEN
     Route: 065
  5. RITUXIMAB [Suspect]
     Indication: B-CELL LYMPHOMA
     Route: 065
  6. ANTIINFECTIVES [Concomitant]
     Indication: INFECTION PROPHYLAXIS
     Route: 065

REACTIONS (2)
  - FEBRILE NEUTROPENIA [None]
  - BACTERAEMIA [None]
